FAERS Safety Report 24523758 (Version 2)
Quarter: 2024Q4

REPORT INFORMATION
  Report Type: Spontaneous
  Country: JP (occurrence: JP)
  Receive Date: 20241018
  Receipt Date: 20241021
  Transmission Date: 20250115
  Serious: Yes (Hospitalization, Other)
  Sender: JAZZ
  Company Number: JP-JAZZ PHARMACEUTICALS-2024-JP-018643

PATIENT
  Sex: Male

DRUGS (1)
  1. VYXEOS [Suspect]
     Active Substance: CYTARABINE\DAUNORUBICIN
     Indication: Acute myeloid leukaemia
     Dosage: UNK, QD
     Route: 042
     Dates: start: 20240914, end: 20241005

REACTIONS (2)
  - Pneumonia fungal [Not Recovered/Not Resolved]
  - Cardiac disorder [Not Recovered/Not Resolved]

NARRATIVE: CASE EVENT DATE: 20240101
